FAERS Safety Report 5902885-6 (Version None)
Quarter: 2008Q3

REPORT INFORMATION
  Report Type: 
  Country: None (occurrence: None)
  Receive Date: 20080929
  Receipt Date: 20080929
  Transmission Date: 20090109
  Serious: No
  Sender: FDA-Public Use
  Company Number: None

PATIENT
  Age: 59 Year
  Sex: Female
  Weight: 86.9999 kg

DRUGS (1)
  1. SANCTURA [Suspect]
     Indication: MICTURITION URGENCY
     Dosage: 20MG  2 PO
     Route: 048
     Dates: start: 20080912, end: 20080922

REACTIONS (9)
  - CHILLS [None]
  - CONSTIPATION [None]
  - DRY EYE [None]
  - DRY MOUTH [None]
  - PRURITUS [None]
  - RASH [None]
  - SOMNOLENCE [None]
  - STOMACH DISCOMFORT [None]
  - URTICARIA [None]
